FAERS Safety Report 20673018 (Version 23)
Quarter: 2023Q4

REPORT INFORMATION
  Report Type: Spontaneous
  Country: US (occurrence: US)
  Receive Date: 20220405
  Receipt Date: 20231108
  Transmission Date: 20240110
  Serious: Yes (Hospitalization, Other)
  Sender: FDA-Public Use
  Company Number: US-GLAXOSMITHKLINE-US2022AMR059502

PATIENT

DRUGS (5)
  1. ZEJULA [Suspect]
     Active Substance: NIRAPARIB
     Indication: Ovarian cancer
     Dosage: 300 MG, QD
  2. ZEJULA [Suspect]
     Active Substance: NIRAPARIB
     Dosage: 200 MG, QD
     Dates: start: 202206
  3. ZEJULA [Suspect]
     Active Substance: NIRAPARIB
     Dosage: 200 MG, QD
     Dates: start: 20230906
  4. ZEJULA [Suspect]
     Active Substance: NIRAPARIB
     Indication: Ovarian cancer
     Dosage: 200 MG, QD
  5. ASPIRIN [Suspect]
     Active Substance: ASPIRIN
     Indication: Product used for unknown indication
     Dosage: UNK

REACTIONS (32)
  - Neuropathy peripheral [Not Recovered/Not Resolved]
  - Recurrent cancer [Unknown]
  - Conjunctival haemorrhage [Not Recovered/Not Resolved]
  - White blood cell count decreased [Unknown]
  - Platelet count decreased [Unknown]
  - Red blood cell count decreased [Unknown]
  - Constipation [Not Recovered/Not Resolved]
  - Palpitations [Unknown]
  - Heart rate increased [Unknown]
  - Condition aggravated [Unknown]
  - Dry mouth [Unknown]
  - Fatigue [Recovered/Resolved]
  - Decreased appetite [Unknown]
  - Full blood count abnormal [Unknown]
  - Tongue disorder [Recovered/Resolved]
  - Decreased activity [Unknown]
  - Motor dysfunction [Unknown]
  - Brain fog [Recovered/Resolved]
  - Emotional disorder [Recovered/Resolved]
  - Crying [Recovered/Resolved]
  - Haemoglobin decreased [Not Recovered/Not Resolved]
  - Tearfulness [Unknown]
  - Abdominal hernia [Unknown]
  - Carbohydrate antigen 125 increased [Not Recovered/Not Resolved]
  - Nasopharyngitis [Unknown]
  - Flatulence [Not Recovered/Not Resolved]
  - Hypertension [Recovering/Resolving]
  - Blood creatinine abnormal [Unknown]
  - Computerised tomogram abnormal [Unknown]
  - Knee operation [Recovered/Resolved]
  - Contusion [Not Recovered/Not Resolved]
  - Epistaxis [Not Recovered/Not Resolved]

NARRATIVE: CASE EVENT DATE: 20220701
